FAERS Safety Report 5266905-7 (Version None)
Quarter: 2007Q1

REPORT INFORMATION
  Report Type: 
  Country: None (occurrence: None)
  Receive Date: 20070316
  Receipt Date: 20070305
  Transmission Date: 20070707
  Serious: Yes (Life-Threatening, Hospitalization, Other)
  Sender: FDA-Public Use
  Company Number: PL-NOVOPROD-260667

PATIENT
  Sex: Male
  Weight: 75 kg

DRUGS (5)
  1. NOVOLOG MIX 70/30 [Suspect]
     Indication: DIABETES MELLITUS
     Dosage: 22 IU, 14-0-8
     Dates: start: 20070124
  2. ENARENAL [Concomitant]
     Indication: CARDIOVASCULAR INSUFFICIENCY
     Dosage: 10 MG, QD
     Dates: start: 20070108
  3. POLPRAZOL [Concomitant]
     Dosage: 20 MG, QD
     Dates: start: 20070108
  4. SPIRONOL [Concomitant]
     Indication: CARDIOVASCULAR INSUFFICIENCY
     Dosage: 25 MG, QD
     Dates: start: 20070108
  5. CARVEDILOL [Concomitant]
     Indication: CARDIOVASCULAR INSUFFICIENCY
     Dosage: 6.25 MG, QD
     Dates: start: 20070108

REACTIONS (5)
  - ASTHENIA [None]
  - CONVULSION [None]
  - HYPERHIDROSIS [None]
  - HYPOGLYCAEMIA [None]
  - LOSS OF CONSCIOUSNESS [None]
